FAERS Safety Report 8368912-4 (Version None)
Quarter: 2012Q2

REPORT INFORMATION
  Report Type: 
  Country: None (occurrence: None)
  Receive Date: 20120516
  Receipt Date: 20120503
  Transmission Date: 20120825
  Serious: Yes (Death)
  Sender: FDA-Public Use
  Company Number: 12-232

PATIENT
  Age: 17 Year
  Sex: Male
  Weight: 83 kg

DRUGS (2)
  1. IBUPROFEN [Suspect]
     Indication: OROPHARYNGEAL PAIN
     Dosage: 400 MG / TID / ORAL
     Route: 048
  2. ACETAMINOPHEN [Suspect]
     Indication: PAIN
     Dosage: 1 G / QID / ORAL
     Route: 048
     Dates: start: 20120304

REACTIONS (5)
  - PLATELET COUNT DECREASED [None]
  - STEVENS-JOHNSON SYNDROME [None]
  - DISEASE COMPLICATION [None]
  - WHITE BLOOD CELL COUNT DECREASED [None]
  - NEUTROPHIL COUNT DECREASED [None]
